FAERS Safety Report 16929717 (Version 1)
Quarter: 2019Q4

REPORT INFORMATION
  Report Type: Spontaneous
  Country: US (occurrence: US)
  Receive Date: 20190826
  Receipt Date: 20190826
  Transmission Date: 20200122
  Serious: No
  Sender: FDA-Public Use
  Company Number: None

PATIENT
  Age: 57 Year
  Sex: Male

DRUGS (1)
  1. TALTZ [Suspect]
     Active Substance: IXEKIZUMAB
     Indication: PSORIASIS
     Dosage: ?          OTHER DOSE:80MG + 160MG;OTHER FREQUENCY:UNKNOWN;?
     Route: 058
     Dates: start: 201908

REACTIONS (4)
  - Oral pain [None]
  - Extra dose administered [None]
  - Dry throat [None]
  - Arthralgia [None]

NARRATIVE: CASE EVENT DATE: 20190814
